FAERS Safety Report 14938427 (Version 2)
Quarter: 2018Q2

REPORT INFORMATION
  Report Type: Spontaneous
  Country: FR (occurrence: FR)
  Receive Date: 20180525
  Receipt Date: 20180525
  Transmission Date: 20180711
  Serious: Yes (Hospitalization)
  Sender: FDA-Public Use
  Company Number: FR-JNJFOC-20180524588

PATIENT
  Age: 74 Year
  Sex: Male
  Weight: 89 kg

DRUGS (6)
  1. XARELTO [Suspect]
     Active Substance: RIVAROXABAN
     Indication: ATRIAL FIBRILLATION
     Route: 048
     Dates: start: 201405, end: 20180403
  2. COTAREG [Concomitant]
     Active Substance: HYDROCHLOROTHIAZIDE\VALSARTAN
     Indication: MYOCARDIAL ISCHAEMIA
     Route: 048
  3. VALPROATE SODIUM. [Concomitant]
     Active Substance: VALPROATE SODIUM
     Indication: EPILEPSY
     Route: 048
  4. CORDARONE [Concomitant]
     Active Substance: AMIODARONE HYDROCHLORIDE
     Indication: ATRIAL FIBRILLATION
     Route: 048
  5. ISOPTINE [Concomitant]
     Active Substance: VERAPAMIL HYDROCHLORIDE
     Indication: ATRIAL FIBRILLATION
     Route: 048
  6. FUROSEMIDE. [Concomitant]
     Active Substance: FUROSEMIDE
     Indication: MYOCARDIAL ISCHAEMIA
     Route: 048

REACTIONS (3)
  - Iron deficiency anaemia [Not Recovered/Not Resolved]
  - Melaena [Recovered/Resolved]
  - Rectal haemorrhage [Recovered/Resolved]

NARRATIVE: CASE EVENT DATE: 201802
